FAERS Safety Report 8836287 (Version 1)
Quarter: 2012Q4

REPORT INFORMATION
  Report Type: 
  Country: SG (occurrence: SG)
  Receive Date: 20121011
  Receipt Date: 20121011
  Transmission Date: 20130627
  Serious: Yes (Death)
  Sender: FDA-Public Use
  Company Number: SG-CELGENEUS-141-21880-12100195

PATIENT
  Age: 58 Year
  Sex: Male

DRUGS (1)
  1. REVLIMID [Suspect]
     Indication: MYELOMA
     Route: 048

REACTIONS (2)
  - Plasma cell myeloma [Fatal]
  - Pneumonia [Fatal]
